FAERS Safety Report 23431365 (Version 1)
Quarter: 2024Q1

REPORT INFORMATION
  Report Type: Spontaneous
  Country: DE (occurrence: DE)
  Receive Date: 20240123
  Receipt Date: 20240123
  Transmission Date: 20240409
  Serious: No
  Sender: FDA-Public Use
  Company Number: DE-ALKEM LABORATORIES LIMITED-DE-ALKEM-2023-15948

PATIENT
  Age: 43 Year
  Sex: Female
  Weight: 103 kg

DRUGS (13)
  1. FINGOLIMOD [Suspect]
     Active Substance: FINGOLIMOD
     Indication: Relapsing-remitting multiple sclerosis
     Dosage: 0.5 MILLIGRAM, TABLET
     Route: 048
     Dates: start: 20210730
  2. AMANTADINE [Concomitant]
     Active Substance: AMANTADINE
     Indication: Fatigue
     Dosage: 100 MILLIGRAMS (EVERY 1 DAY)
     Route: 048
  3. BACLOFEN [Concomitant]
     Active Substance: BACLOFEN
     Indication: Muscle spasticity
     Dosage: 2.5 MILLIGRAM (EVERY 3 DAY)
     Route: 048
     Dates: end: 20220907
  4. BACLOFEN [Concomitant]
     Active Substance: BACLOFEN
     Dosage: 10 MILLIGRAMS (EVERY 1 DAY)
     Route: 048
     Dates: start: 20220908, end: 20231203
  5. BACLOFEN [Concomitant]
     Active Substance: BACLOFEN
     Dosage: 2.5 MILLIGRAMS (EVERY 1 DAY)
     Route: 048
     Dates: start: 20231204
  6. COMIRNATY (TOZINAMERAN) [Concomitant]
     Active Substance: TOZINAMERAN
     Indication: Prophylaxis
     Dosage: UNK (1 AS NECESSARY)
     Route: 030
     Dates: start: 20210505, end: 20210505
  7. COMIRNATY (TOZINAMERAN) [Concomitant]
     Active Substance: TOZINAMERAN
     Dosage: UNK (1 AS NECESSARY)
     Route: 030
     Dates: start: 20210526, end: 20210526
  8. COMIRNATY (TOZINAMERAN) [Concomitant]
     Active Substance: TOZINAMERAN
     Dosage: 0.3 MILLILITER
     Route: 030
     Dates: start: 20211203, end: 20211203
  9. CHOLECALCIFEROL [Concomitant]
     Active Substance: CHOLECALCIFEROL
     Indication: Prophylaxis
     Dosage: 20000 IU INTERNATIONAL UNIT(S), ONCE WEEKLY
     Route: 048
     Dates: end: 20220907
  10. NABIXIMOLS [Concomitant]
     Active Substance: NABIXIMOLS
     Indication: Muscle spasticity
     Dosage: UNK
     Route: 048
     Dates: start: 20220302, end: 20220312
  11. METHYLPREDNISOLONE [Concomitant]
     Active Substance: METHYLPREDNISOLONE
     Indication: Prophylaxis
     Dosage: 1 GRAM, QD (EVERY 1 DAY)
     Route: 042
     Dates: start: 20211213, end: 20211215
  12. METHYLPREDNISOLONE [Concomitant]
     Active Substance: METHYLPREDNISOLONE
     Dosage: 2 GRAM, QD (EVERY 1 DAY)
     Route: 042
     Dates: start: 20220307, end: 20220311
  13. VITAMIN D [Concomitant]
     Active Substance: VITAMIN D NOS
     Indication: Prophylaxis
     Dosage: 1000 IU INTERNATIONAL UNIT(S) ( EVERY 4 WEEK)
     Route: 048
     Dates: start: 20220309, end: 20221207

REACTIONS (1)
  - Influenza like illness [Recovered/Resolved]

NARRATIVE: CASE EVENT DATE: 20231101
